FAERS Safety Report 8054931 (Version 4)
Quarter: 2013Q3

REPORT INFORMATION
  Report Type: Spontaneous
  Country: US (occurrence: US)
  Receive Date: 20110726
  Receipt Date: 20130703
  Transmission Date: 20140515
  Serious: Yes (Hospitalization, Congenital Anomaly)
  Sender: FDA-Public Use
  Company Number: US-GLAXOSMITHKLINE-A0934110A

PATIENT
  Age: 0 Day
  Sex: Female

DRUGS (4)
  1. PAXIL [Suspect]
     Indication: DEPRESSION
     Dosage: 20MG UNKNOWN
     Route: 064
     Dates: start: 200202, end: 200501
  2. PAROXETINE [Suspect]
     Indication: DEPRESSION
     Route: 064
  3. MACROBID [Concomitant]
  4. PRENATAL VITAMINS [Concomitant]

REACTIONS (5)
  - Cerebral ventricle dilatation [Unknown]
  - Foetal exposure during pregnancy [Unknown]
  - Spina bifida [Unknown]
  - Meningomyelocele [Unknown]
  - Arnold-Chiari malformation [Unknown]
